FAERS Safety Report 10373884 (Version 1)
Quarter: 2014Q1

REPORT INFORMATION
  Report Type: Spontaneous
  Country: US (occurrence: None)
  Receive Date: 20140306
  Receipt Date: 20140306
  Transmission Date: 20141002
  Serious: Yes (Hospitalization, Other)
  Sender: FDA-Public Use
  Company Number: 163-21880-13074175

PATIENT
  Age: 87 Year
  Sex: Female
  Weight: 65.86 kg

DRUGS (15)
  1. REVLIMID (LENALIDOMIDE) (CAPSULES) [Suspect]
     Indication: DIFFUSE LARGE B-CELL LYMPHOMA
     Dosage: 10 MG, 21 IN 28 D, PO
     Route: 048
     Dates: start: 201305, end: 20130629
  2. OXAZEPAM (OXAZEPAM) (UNKNOWN) [Concomitant]
  3. ASPIRIN (ACETYLSALICYLIC ACID) (ENTERIC-COATED TABLET) [Concomitant]
  4. BYSTOLIC (NEBIVOLOL HYDROCHLORIDE) (TABLETS) [Concomitant]
  5. CALCIUM + VITAMIN D (LEKOVIT CA) (TABLETS) [Concomitant]
  6. DEXAMETHASONE (DEXAMETHASONE) (TABLETS) [Concomitant]
  7. FUROSEMIDE (FUROSEMIDE) (TABLETS) [Concomitant]
  8. KLOR-CON (POTASSIUM CHLORIDE) (SUSTAINED-RELEASE TABLET) [Concomitant]
  9. NORVASC (AMLODIPINE BESILATE) (TABLETS) [Concomitant]
  10. PRILOSEC (OMEPRAZOLE) [Concomitant]
  11. SYNTHROID (LEVOTHYROXINE SODIUM) (TABLETS) [Concomitant]
  12. OXALIPLATIN (OXALIPLATIN) (UNKNOWN) [Concomitant]
  13. ALLOPURINOL (ALLOPURINOL) (TABLETS) [Concomitant]
  14. PERCOCET (OXYCOCET) (TABLETS) [Concomitant]
  15. OXYGEN (OXYGEN) (GAS FOR INHALATION) [Concomitant]

REACTIONS (7)
  - Staphylococcal bacteraemia [None]
  - Deep vein thrombosis [None]
  - Anaemia [None]
  - Cardiac failure congestive [None]
  - Diffuse large B-cell lymphoma [None]
  - Disease progression [None]
  - Neutropenia [None]
